FAERS Safety Report 14203429 (Version 4)
Quarter: 2018Q1

REPORT INFORMATION
  Report Type: Spontaneous
  Country: JP (occurrence: JP)
  Receive Date: 20171120
  Receipt Date: 20180216
  Transmission Date: 20180508
  Serious: Yes (Death, Hospitalization, Other)
  Sender: FDA-Public Use
  Company Number: JP-009507513-1711JPN000871J

PATIENT
  Age: 66 Year
  Sex: Male
  Weight: 55 kg

DRUGS (5)
  1. LOXOPROFEN SODIUM HYDRATE [Suspect]
     Active Substance: LOXOPROFEN SODIUM DIHYDRATE
     Dosage: 1 DF, BID
     Route: 048
     Dates: start: 20170802, end: 20171110
  2. KEYTRUDA [Suspect]
     Active Substance: PEMBROLIZUMAB
     Indication: LUNG ADENOCARCINOMA STAGE IV
     Dosage: 200 MG, EVERY 3 WEEKS
     Route: 041
     Dates: start: 20170907, end: 20171023
  3. CARBOCISTEINE [Suspect]
     Active Substance: CARBOCYSTEINE
     Dosage: 2 DF, TID
     Route: 048
     Dates: start: 20170927, end: 20171110
  4. LANSOPRAZOLE. [Suspect]
     Active Substance: LANSOPRAZOLE
     Dosage: 1 DF, QD
     Route: 048
     Dates: start: 20170802, end: 20171110
  5. CALONAL [Suspect]
     Active Substance: ACETAMINOPHEN
     Dosage: 3 DF, TID
     Route: 048
     Dates: start: 20170802, end: 20171110

REACTIONS (2)
  - Pulmonary oedema [Unknown]
  - Interstitial lung disease [Fatal]

NARRATIVE: CASE EVENT DATE: 20171110
